FAERS Safety Report 18898261 (Version 2)
Quarter: 2021Q1

REPORT INFORMATION
  Report Type: Report from Study
  Country: TW (occurrence: TW)
  Receive Date: 20210216
  Receipt Date: 20210305
  Transmission Date: 20210420
  Serious: Yes (Death, Hospitalization, Other)
  Sender: FDA-Public Use
  Company Number: TW-INCYTE CORPORATION-2021IN001120

PATIENT

DRUGS (3)
  1. JAKAVI [Suspect]
     Active Substance: RUXOLITINIB
     Indication: PRIMARY MYELOFIBROSIS
     Dosage: 20 MG, BID
     Route: 048
     Dates: start: 20181026, end: 20210114
  2. JAKAVI [Suspect]
     Active Substance: RUXOLITINIB
     Dosage: 40 MG, QD AND 20 MG ,QD ALTERNATLY
     Route: 048
  3. JAKAVI [Suspect]
     Active Substance: RUXOLITINIB
     Dosage: 20 MG, BID
     Route: 048
     Dates: start: 20181026, end: 20210114

REACTIONS (17)
  - Hypersensitivity pneumonitis [Unknown]
  - Hypophagia [Unknown]
  - Stenotrophomonas infection [Unknown]
  - Hypoxia [Unknown]
  - Myocardial ischaemia [Unknown]
  - Staphylococcal infection [Unknown]
  - Obstructive airways disorder [Unknown]
  - General physical health deterioration [Unknown]
  - Choking [Unknown]
  - Urinary tract infection [Unknown]
  - Cytomegalovirus test positive [Unknown]
  - C-reactive protein increased [Unknown]
  - Hypotension [Unknown]
  - Pneumonia aspiration [Fatal]
  - Somnolence [Unknown]
  - Pulmonary oedema [Unknown]
  - Pancytopenia [Unknown]

NARRATIVE: CASE EVENT DATE: 20190709
